FAERS Safety Report 8992207 (Version 1)
Quarter: 2012Q4

REPORT INFORMATION
  Report Type: 
  Country: US (occurrence: US)
  Receive Date: 20121231
  Receipt Date: 20121231
  Transmission Date: 20130627
  Serious: No
  Sender: FDA-Public Use
  Company Number: US-009507513-1212USA009983

PATIENT
  Sex: Female

DRUGS (8)
  1. NITRO-DUR [Suspect]
     Indication: CHEST PAIN
     Dosage: 0.3 mg, qd
     Route: 062
     Dates: end: 20121214
  2. NITROGLYCERIN [Concomitant]
  3. HYDROCHLOROTHIAZIDE [Concomitant]
  4. PRAVASTATIN SODIUM [Concomitant]
  5. COUMADIN [Concomitant]
  6. CARVEDILOL [Concomitant]
  7. ZETIA [Concomitant]
  8. SPIRONOLACTONE [Concomitant]

REACTIONS (2)
  - Reaction to drug excipients [Recovered/Resolved]
  - Off label use [Unknown]
